FAERS Safety Report 5674943-5 (Version None)
Quarter: 2008Q1

REPORT INFORMATION
  Report Type: 
  Country: None (occurrence: None)
  Receive Date: 20080320
  Receipt Date: 20080308
  Transmission Date: 20080703
  Serious: Yes (Other)
  Sender: FDA-Public Use
  Company Number: US-PFIZER INC-2008005975

PATIENT
  Sex: Female
  Weight: 68 kg

DRUGS (9)
  1. CHANTIX [Suspect]
     Indication: SMOKING CESSATION THERAPY
     Route: 048
  2. CHANTIX [Suspect]
     Indication: TOBACCO ABUSE
  3. METHYLPREDNISOLONE [Suspect]
  4. AUGMENTIN '125' [Concomitant]
     Indication: NASOPHARYNGITIS
  5. TRAZODONE HCL [Concomitant]
     Indication: DEPRESSION
  6. SEROQUEL [Concomitant]
     Indication: DEPRESSION
  7. SYNTHROID [Concomitant]
  8. ESTRATEST [Concomitant]
  9. AZITHROMYCIN [Concomitant]

REACTIONS (11)
  - AGITATION [None]
  - DEPRESSION [None]
  - FEELING HOT [None]
  - HEADACHE [None]
  - INSOMNIA [None]
  - MALAISE [None]
  - MOOD ALTERED [None]
  - NAUSEA [None]
  - NERVOUSNESS [None]
  - PRURITUS [None]
  - SWELLING FACE [None]
